FAERS Safety Report 19811298 (Version 1)
Quarter: 2021Q3

REPORT INFORMATION
  Report Type: Spontaneous
  Country: US (occurrence: US)
  Receive Date: 20210909
  Receipt Date: 20210909
  Transmission Date: 20211014
  Serious: No
  Sender: FDA-Public Use
  Company Number: US-APOTEX-2021AP042434

PATIENT
  Age: 30 Year
  Sex: Female

DRUGS (2)
  1. BUTORPHANOL [Suspect]
     Active Substance: BUTORPHANOL
     Indication: CHOLESTATIC PRURITUS
     Dosage: 1 MG/DAY TO 3 MG/DAY (EQUIVALENT TO 1 PUFF TO 3 PUFFS PER DAY)
     Route: 045
     Dates: start: 201910, end: 2019
  2. URSODEOXYCHOLIC ACID [Concomitant]
     Active Substance: URSODIOL
     Indication: PRODUCT USED FOR UNKNOWN INDICATION
     Dosage: 1250 MILLIGRAM, QD
     Route: 065

REACTIONS (3)
  - Off label use [Unknown]
  - Dizziness [Unknown]
  - Somnolence [Unknown]

NARRATIVE: CASE EVENT DATE: 2019
